FAERS Safety Report 8078403-6 (Version None)
Quarter: 2012Q1

REPORT INFORMATION
  Report Type: 
  Country: None (occurrence: None)
  Receive Date: 20120123
  Receipt Date: 20120109
  Transmission Date: 20120608
  Serious: Yes (Hospitalization, Other)
  Sender: FDA-Public Use
  Company Number: 2012P1001070

PATIENT
  Age: 45 Year
  Sex: Female
  Weight: 45.3597 kg

DRUGS (3)
  1. FENTANYL-75 [Suspect]
     Indication: POST PROCEDURAL COMPLICATION
     Dosage: 2 PATCHES;Q48H;TDER
     Route: 062
     Dates: start: 19960101
  2. FENTANYL-75 [Suspect]
     Indication: NERVE INJURY
     Dosage: 2 PATCHES;Q48H;TDER
     Route: 062
     Dates: start: 19960101
  3. LUNESTA [Concomitant]

REACTIONS (2)
  - AMNESIA [None]
  - PNEUMONIA [None]
